FAERS Safety Report 9707247 (Version 1)
Quarter: 2013Q4

REPORT INFORMATION
  Report Type: Spontaneous
  Country: US (occurrence: US)
  Receive Date: 20131125
  Receipt Date: 20131125
  Transmission Date: 20140711
  Serious: Yes (Other)
  Sender: FDA-Public Use
  Company Number: US-BAYER-2013-141952

PATIENT
  Sex: 0

DRUGS (2)
  1. STIVARGA [Suspect]
     Dosage: UNK
  2. COUMADIN [Concomitant]

REACTIONS (4)
  - Hypertensive crisis [None]
  - Gingival bleeding [None]
  - Rectal haemorrhage [None]
  - Pain [None]
